FAERS Safety Report 20080590 (Version 1)
Quarter: 2021Q4

REPORT INFORMATION
  Report Type: Spontaneous
  Country: DE (occurrence: DE)
  Receive Date: 20211117
  Receipt Date: 20211117
  Transmission Date: 20220303
  Serious: No
  Sender: FDA-Public Use
  Company Number: DE-HORMOSAN PHARMA GMBH-2021-22449

PATIENT
  Sex: Female
  Weight: 58 kg

DRUGS (1)
  1. ETHINYL ESTRADIOL\LEVONORGESTREL [Suspect]
     Active Substance: ETHINYL ESTRADIOL\LEVONORGESTREL
     Indication: Product used for unknown indication
     Dosage: 1 DOSAGE FORM, QD
     Route: 065
     Dates: start: 202107

REACTIONS (2)
  - Fatigue [Not Recovered/Not Resolved]
  - Headache [Not Recovered/Not Resolved]

NARRATIVE: CASE EVENT DATE: 20211001
